FAERS Safety Report 9841322 (Version 6)
Quarter: 2024Q2

REPORT INFORMATION
  Report Type: Report from Study
  Country: DE (occurrence: DE)
  Receive Date: 20140124
  Receipt Date: 20240625
  Transmission Date: 20240715
  Serious: Yes (Hospitalization)
  Sender: FDA-Public Use
  Company Number: DE-JNJFOC-20140110571

PATIENT
  Age: 14 Year
  Sex: Female
  Weight: 32.3 kg

DRUGS (5)
  1. REMICADE [Suspect]
     Active Substance: INFLIXIMAB
     Indication: Crohn^s disease
     Route: 041
     Dates: start: 20130306, end: 20131108
  2. REMICADE [Suspect]
     Active Substance: INFLIXIMAB
     Dates: start: 20131220, end: 20140623
  3. REMICADE [Suspect]
     Active Substance: INFLIXIMAB
     Route: 041
     Dates: start: 20130814, end: 20131108
  4. REMICADE [Suspect]
     Active Substance: INFLIXIMAB
     Route: 041
     Dates: start: 20130306, end: 20130619
  5. AZATHIOPRINE [Concomitant]
     Active Substance: AZATHIOPRINE

REACTIONS (4)
  - Anal fistula [Recovered/Resolved with Sequelae]
  - Crohn^s disease [Recovered/Resolved with Sequelae]
  - Abscess [Recovered/Resolved]
  - Blood iron decreased [Unknown]

NARRATIVE: CASE EVENT DATE: 20130814
